FAERS Safety Report 7781801-9 (Version None)
Quarter: 2011Q3

REPORT INFORMATION
  Report Type: 
  Country: None (occurrence: None)
  Receive Date: 20110927
  Receipt Date: 20110918
  Transmission Date: 20111222
  Serious: Yes (Other)
  Sender: FDA-Public Use
  Company Number: SY-GLAXOSMITHKLINE-B0748980A

PATIENT
  Sex: Female
  Weight: 60 kg

DRUGS (2)
  1. FOLIC ACID [Suspect]
     Indication: PROPHYLAXIS
     Dosage: 5MG PER DAY
     Route: 065
     Dates: start: 20100101
  2. LAMICTAL [Suspect]
     Indication: EPILEPSY
     Dosage: 100MG PER DAY
     Route: 065
     Dates: start: 20101108

REACTIONS (2)
  - MATERNAL EXPOSURE DURING PREGNANCY [None]
  - ABORTION INDUCED [None]
